FAERS Safety Report 9014815 (Version 1)
Quarter: 2013Q1

REPORT INFORMATION
  Report Type: Spontaneous
  Country: US (occurrence: US)
  Receive Date: 20130116
  Receipt Date: 20130116
  Transmission Date: 20140127
  Serious: Yes (Other)
  Sender: FDA-Public Use
  Company Number: US-AMGEN-USASP2013001430

PATIENT
  Age: 58 Year
  Sex: Male

DRUGS (1)
  1. XGEVA [Suspect]
     Indication: METASTASES TO BONE
     Dosage: 120 MG, Q4WK
     Dates: start: 201112

REACTIONS (1)
  - Osteonecrosis of jaw [Unknown]
